FAERS Safety Report 9305361 (Version 1)
Quarter: 2013Q2

REPORT INFORMATION
  Report Type: Spontaneous
  Country: US (occurrence: US)
  Receive Date: 20130523
  Receipt Date: 20130523
  Transmission Date: 20140414
  Serious: Yes (Disabling, Other)
  Sender: FDA-Public Use
  Company Number: US-PFIZER INC-2013158420

PATIENT
  Age: 53 Year
  Sex: Female

DRUGS (2)
  1. LYRICA [Suspect]
     Indication: BACK DISORDER
     Dosage: 300 MG, 3X/DAY
  2. LYRICA [Suspect]
     Indication: ARTHRITIS

REACTIONS (2)
  - Off label use [Unknown]
  - Fall [Not Recovered/Not Resolved]
